FAERS Safety Report 17210666 (Version 2)
Quarter: 2020Q1

REPORT INFORMATION
  Report Type: Spontaneous
  Country: US (occurrence: US)
  Receive Date: 20191227
  Receipt Date: 20200212
  Transmission Date: 20200409
  Serious: No
  Sender: FDA-Public Use
  Company Number: US-009507513-1912USA003058

PATIENT
  Age: 25 Year
  Sex: Female
  Weight: 82.09 kg

DRUGS (5)
  1. PEPCID [Concomitant]
     Active Substance: FAMOTIDINE
  2. NEXPLANON [Suspect]
     Active Substance: ETONOGESTREL
     Indication: CONTRACEPTION
     Dosage: 1 ROD, LEFT ARM
     Route: 059
     Dates: start: 20130301, end: 20171106
  3. NEXPLANON [Suspect]
     Active Substance: ETONOGESTREL
     Dosage: 1 ROD, EVERY 3 YEARS, RIGHT ARM
     Route: 059
     Dates: start: 201901, end: 20191210
  4. IMPLANON [Suspect]
     Active Substance: ETONOGESTREL
     Dosage: 1 DOSAGE FORM, LEFT ARM
     Route: 059
     Dates: start: 20101118
  5. SINGULAIR [Concomitant]
     Active Substance: MONTELUKAST SODIUM
     Route: 048

REACTIONS (5)
  - Implant site scar [Unknown]
  - Weight increased [Unknown]
  - Complication associated with device [Recovered/Resolved]
  - Incorrect product administration duration [Unknown]
  - Implant site pain [Not Recovered/Not Resolved]

NARRATIVE: CASE EVENT DATE: 20160301
